FAERS Safety Report 20623744 (Version 1)
Quarter: 2022Q1

REPORT INFORMATION
  Report Type: Spontaneous
  Country: US (occurrence: US)
  Receive Date: 20220322
  Receipt Date: 20220322
  Transmission Date: 20220423
  Serious: No
  Sender: FDA-Public Use
  Company Number: US-009507513-2202USA007991

PATIENT
  Age: 16 Year
  Sex: Male

DRUGS (1)
  1. STROMECTOL [Suspect]
     Active Substance: IVERMECTIN
     Indication: Parasitic infection prophylaxis
     Dosage: ONE DOSE, 0.2 MG/KG/DOSE, TOTALING 15 MG
     Route: 048

REACTIONS (1)
  - Product use in unapproved indication [Unknown]
